FAERS Safety Report 5090085-4 (Version None)
Quarter: 2006Q3

REPORT INFORMATION
  Report Type: 
  Country: None (occurrence: None)
  Receive Date: 20060828
  Receipt Date: 20060208
  Transmission Date: 20061208
  Serious: Yes (Disabling)
  Sender: FDA-Public Use
  Company Number: US-GLAXOSMITHKLINE-A0593576A

PATIENT
  Age: 46 Year
  Sex: Female
  Weight: 104.5 kg

DRUGS (2)
  1. WELLBUTRIN XL [Suspect]
     Indication: DEPRESSION
     Dosage: 300MG PER DAY
     Route: 048
     Dates: start: 20050301, end: 20060101
  2. LEXAPRO [Concomitant]

REACTIONS (6)
  - DIARRHOEA [None]
  - DRUG WITHDRAWAL SYNDROME [None]
  - MYALGIA [None]
  - PNEUMONIA [None]
  - PYREXIA [None]
  - VOMITING [None]
